FAERS Safety Report 16513880 (Version 1)
Quarter: 2019Q3

REPORT INFORMATION
  Report Type: Spontaneous
  Country: US (occurrence: US)
  Receive Date: 20190701
  Receipt Date: 20190701
  Transmission Date: 20191004
  Serious: Yes (Other)
  Sender: FDA-Public Use
  Company Number: US-ROCHE-2149382

PATIENT
  Sex: Female

DRUGS (1)
  1. KLONOPIN [Suspect]
     Active Substance: CLONAZEPAM
     Indication: PANIC ATTACK
     Dosage: ONGOING: UNKNOWN
     Route: 065

REACTIONS (8)
  - Anxiety [Unknown]
  - Tinnitus [Unknown]
  - Stress [Unknown]
  - Thinking abnormal [Unknown]
  - Feeling abnormal [Unknown]
  - Emotional distress [Unknown]
  - Musculoskeletal stiffness [Unknown]
  - Panic reaction [Unknown]

NARRATIVE: CASE EVENT DATE: 20180702
